FAERS Safety Report 11099170 (Version 2)
Quarter: 2016Q4

REPORT INFORMATION
  Report Type: Spontaneous
  Country: US (occurrence: US)
  Receive Date: 20150508
  Receipt Date: 20161013
  Transmission Date: 20170206
  Serious: No
  Sender: FDA-Public Use
  Company Number: US-009507513-1504USA024544

PATIENT
  Sex: Female
  Weight: 72.5 kg

DRUGS (4)
  1. CENTRUM SPECIALIST HEART [Suspect]
     Active Substance: MINERALS\PHYTOSTEROLS\VITAMINS
     Indication: BLOOD CHOLESTEROL ABNORMAL
     Dosage: ONCE A DAY IN THE MORNING AFTER BREAKFAST
     Dates: start: 2010
  2. ZOCOR [Suspect]
     Active Substance: SIMVASTATIN
     Indication: BLOOD CHOLESTEROL ABNORMAL
     Dosage: 5MG TWO IN THE MORNING AND TWO AT SUPPERTIME
     Route: 048
  3. GLYBURIDE. [Concomitant]
     Active Substance: GLYBURIDE
     Indication: TYPE 2 DIABETES MELLITUS
     Dosage: 5 MG, TWO IN THE MORNING AND TWO AT BEDTIME
  4. CENTRUM SPECIALIST HEART [Suspect]
     Active Substance: MINERALS\PHYTOSTEROLS\VITAMINS
     Indication: BLOOD CHOLESTEROL ABNORMAL

REACTIONS (1)
  - Drug ineffective [Not Recovered/Not Resolved]
